FAERS Safety Report 6030059-X (Version None)
Quarter: 2009Q1

REPORT INFORMATION
  Report Type: 
  Country: None (occurrence: None)
  Receive Date: 20090107
  Receipt Date: 20090106
  Transmission Date: 20090719
  Serious: Yes (Hospitalization, Other)
  Sender: FDA-Public Use
  Company Number: GB-TEVA-183403ISR

PATIENT
  Sex: Male
  Weight: 71.5 kg

DRUGS (8)
  1. CLARITHROMYCIN [Suspect]
     Indication: MYCOBACTERIUM AVIUM COMPLEX INFECTION
     Route: 048
     Dates: start: 20080905, end: 20081016
  2. DIAZEPAM [Suspect]
     Indication: INSOMNIA
     Route: 048
     Dates: start: 20080522, end: 20081204
  3. ATRIPLA (EFAVIRENZ W/ EMTRICITABINE W/TENOFOVIR) [Suspect]
     Indication: HIV INFECTION CDC GROUP IV SUBGROUP E
     Route: 048
     Dates: start: 20080801, end: 20081016
  4. DAPSONE [Suspect]
     Indication: PNEUMOCYSTIS JIROVECI PNEUMONIA
     Route: 048
     Dates: start: 20080801, end: 20081031
  5. EFAVIRENZ [Suspect]
     Indication: HIV INFECTION CDC GROUP IV SUBGROUP E
     Route: 048
     Dates: start: 20080522, end: 20080801
  6. ETHAMBUTOL [Suspect]
     Indication: MYCOBACTERIUM AVIUM COMPLEX INFECTION
     Route: 048
     Dates: start: 20080905, end: 20081016
  7. RIFABUTIN [Suspect]
     Indication: MYCOBACTERIUM AVIUM COMPLEX INFECTION
     Route: 048
     Dates: start: 20080905, end: 20081016
  8. EMTRICITABINE W/TENOFOVIR [Suspect]
     Indication: HIV INFECTION CDC GROUP IV SUBGROUP E
     Route: 048
     Dates: start: 20080522, end: 20080801

REACTIONS (6)
  - ASTHENIA [None]
  - CARDIAC ARREST [None]
  - CONFUSIONAL STATE [None]
  - HYPERKALAEMIA [None]
  - LOSS OF CONSCIOUSNESS [None]
  - RENAL TUBULAR NECROSIS [None]
